FAERS Safety Report 5779849-9 (Version None)
Quarter: 2008Q2

REPORT INFORMATION
  Report Type: 
  Country: None (occurrence: None)
  Receive Date: 20080620
  Receipt Date: 20080620
  Transmission Date: 20081010
  Serious: Yes (Hospitalization)
  Sender: FDA-Public Use
  Company Number: PHHO2005AU05517

PATIENT
  Sex: Male
  Weight: 77.2 kg

DRUGS (5)
  1. ZOLEDRONIC ACID [Suspect]
     Indication: OSTEITIS DEFORMANS
     Dosage: 5MG
     Dates: start: 20030408
  2. ZOLEDRONIC ACID [Suspect]
     Dosage: EXTENDED OBSERVATION PERIOD
  3. PRAVACHOL [Concomitant]
     Indication: HYPERCHOLESTEROLAEMIA
     Dosage: UNK, QD
     Route: 048
     Dates: start: 19960101
  4. PROGESTIN INJ [Concomitant]
     Indication: GOUT
     Dosage: UNK, QD
     Route: 048
     Dates: start: 19940615
  5. WARFARIN SODIUM [Concomitant]
     Dosage: 4 MG, QD
     Dates: start: 19980101

REACTIONS (3)
  - ATRIAL FIBRILLATION [None]
  - CONCOMITANT DISEASE PROGRESSION [None]
  - DYSPNOEA [None]
